FAERS Safety Report 16656342 (Version 1)
Quarter: 2019Q3

REPORT INFORMATION
  Report Type: Spontaneous
  Country: US (occurrence: US)
  Receive Date: 20190801
  Receipt Date: 20190801
  Transmission Date: 20191004
  Serious: No
  Sender: FDA-Public Use
  Company Number: US-PACIRA-201800178

PATIENT

DRUGS (2)
  1. EXPAREL [Suspect]
     Active Substance: BUPIVACAINE
     Indication: POSTOPERATIVE ANALGESIA
     Dosage: 10 CC, SINGLE, FREQUENCY : SINGLE
  2. EXPAREL [Suspect]
     Active Substance: BUPIVACAINE
     Indication: POSTOPERATIVE ANALGESIA
     Dosage: 266 MG, SINGLE, FREQUENCY : SINGLE

REACTIONS (3)
  - Extra dose administered [Unknown]
  - Off label use [Unknown]
  - No adverse event [Unknown]
